FAERS Safety Report 11879694 (Version 2)
Quarter: 2016Q1

REPORT INFORMATION
  Report Type: Spontaneous
  Country: US (occurrence: US)
  Receive Date: 20151230
  Receipt Date: 20160105
  Transmission Date: 20160526
  Serious: Yes (Hospitalization)
  Sender: FDA-Public Use
  Company Number: US-PFIZER INC-2015467592

PATIENT
  Age: 18 Year
  Sex: Female

DRUGS (7)
  1. ATENOLOL. [Concomitant]
     Active Substance: ATENOLOL
     Indication: BASEDOW^S DISEASE
     Dosage: UNK
  2. PREDNISONE. [Concomitant]
     Active Substance: PREDNISONE
     Indication: THROAT TIGHTNESS
     Dosage: UNK
  3. PREDNISONE. [Concomitant]
     Active Substance: PREDNISONE
     Indication: URTICARIA
  4. METHIMAZOLE. [Suspect]
     Active Substance: METHIMAZOLE
     Indication: BASEDOW^S DISEASE
     Dosage: 25 MG, 2X/DAY
  5. PREDNISONE. [Concomitant]
     Active Substance: PREDNISONE
     Indication: DYSPNOEA
  6. PREDNISONE. [Concomitant]
     Active Substance: PREDNISONE
     Indication: SWELLING FACE
  7. PREDNISONE. [Concomitant]
     Active Substance: PREDNISONE
     Indication: VOMITING

REACTIONS (3)
  - Anaphylactic reaction [Recovered/Resolved]
  - Skin reaction [Unknown]
  - Skin test positive [Unknown]
